FAERS Safety Report 21351357 (Version 1)
Quarter: 2022Q3

REPORT INFORMATION
  Report Type: Report from Study
  Country: CN (occurrence: CN)
  Receive Date: 20220919
  Receipt Date: 20220919
  Transmission Date: 20221027
  Serious: Yes (Other)
  Sender: FDA-Public Use
  Company Number: CN-SA-2022SA381853

PATIENT

DRUGS (2)
  1. RASBURICASE [Suspect]
     Active Substance: RASBURICASE
     Indication: Gouty arthritis
     Dosage: UNK,INJECTION AT WEEK 0
  2. RASBURICASE [Suspect]
     Active Substance: RASBURICASE
     Dosage: UNK,INJECTION AT WEEK 8

REACTIONS (2)
  - Acute kidney injury [Recovering/Resolving]
  - Off label use [Recovering/Resolving]
